FAERS Safety Report 20249251 (Version 1)
Quarter: 2021Q4

REPORT INFORMATION
  Report Type: Spontaneous
  Country: US (occurrence: US)
  Receive Date: 20211229
  Receipt Date: 20211229
  Transmission Date: 20220303
  Serious: No
  Sender: FDA-Public Use
  Company Number: US-PFIZER INC-202101198806

PATIENT
  Age: 69 Year
  Sex: Female
  Weight: 51.701 kg

DRUGS (3)
  1. IBRANCE [Suspect]
     Active Substance: PALBOCICLIB
     Indication: Breast cancer
     Dosage: 75 MG, DAILY (FOR 21 DAYS, 7 DAYS OFF))
     Route: 048
     Dates: start: 202108
  2. FASLODEX [Concomitant]
     Active Substance: FULVESTRANT
     Dosage: UNK
  3. VITAMIN B12 [Concomitant]
     Active Substance: CYANOCOBALAMIN
     Dosage: UNK

REACTIONS (4)
  - Diarrhoea [Unknown]
  - Red blood cell count abnormal [Unknown]
  - Deja vu [Unknown]
  - Fatigue [Unknown]
